FAERS Safety Report 16455427 (Version 6)
Quarter: 2019Q4

REPORT INFORMATION
  Report Type: Spontaneous
  Country: JP (occurrence: JP)
  Receive Date: 20190620
  Receipt Date: 20191011
  Transmission Date: 20200122
  Serious: Yes (Hospitalization, Other)
  Sender: FDA-Public Use
  Company Number: JP-BRISTOL-MYERS SQUIBB COMPANY-BMS-2019-059097

PATIENT
  Age: 71 Year
  Sex: Male
  Weight: 54.1 kg

DRUGS (13)
  1. ALLOID G [Concomitant]
     Active Substance: SODIUM ALGINATE
     Indication: BLOOD LOSS ANAEMIA
     Dosage: UNK, Q8H
     Route: 048
     Dates: start: 20190603
  2. GLACTIV [Suspect]
     Active Substance: SITAGLIPTIN
     Indication: TYPE 2 DIABETES MELLITUS
     Dosage: 50 MILLIGRAM, QD
     Route: 048
     Dates: start: 20190201
  3. OPDIVO [Suspect]
     Active Substance: NIVOLUMAB
     Indication: GASTRIC CANCER
     Dosage: 240 MILLIGRAM, Q2WK
     Route: 041
     Dates: start: 20190423
  4. TRAMAL [Concomitant]
     Active Substance: TRAMADOL
     Indication: CANCER PAIN
     Dosage: 25 MILLIGRAM, Q6H
     Route: 048
     Dates: start: 20190327
  5. MAGMITT [Concomitant]
     Active Substance: MAGNESIUM OXIDE
     Indication: CONSTIPATION
     Dosage: 330 MILLIGRAM, Q8H
     Route: 048
     Dates: start: 20180828
  6. PACLITAXEL. [Suspect]
     Active Substance: PACLITAXEL
     Indication: GASTRIC CANCER
     Dosage: UNK
     Route: 065
     Dates: start: 20190201, end: 20190304
  7. IRINOTECAN HYDROCHLORIDE. [Suspect]
     Active Substance: IRINOTECAN HYDROCHLORIDE
     Indication: GASTRIC CANCER
     Dosage: 120 MILLIGRAM/SQ. METER
     Route: 065
     Dates: start: 20190604, end: 20190604
  8. ZOLEDRONIC ACID [Concomitant]
     Active Substance: ZOLEDRONIC ACID
     Indication: METASTASES TO BONE
     Dosage: UNK
     Route: 065
     Dates: start: 20180827, end: 20190522
  9. TAKECAB [Concomitant]
     Active Substance: VONOPRAZAN FUMURATE
     Indication: GASTROOESOPHAGEAL REFLUX DISEASE
     Dosage: 20 MILLIGRAM, QD
     Route: 048
     Dates: start: 20180809
  10. FERROMIA [Concomitant]
     Active Substance: SODIUM FERROUS CITRATE
     Indication: IRON DEFICIENCY ANAEMIA
     Dosage: 50 MILLIGRAM, Q12H
     Route: 048
     Dates: start: 20180809
  11. BROTIZOLAM [Concomitant]
     Active Substance: BROTIZOLAM
     Indication: INSOMNIA
     Dosage: 0.25 MILLIGRAM, PRN
     Route: 048
     Dates: start: 20190111
  12. CALONAL [Concomitant]
     Active Substance: ACETAMINOPHEN
     Indication: CANCER PAIN
     Dosage: 300 MILLIGRAM, Q6H
     Route: 048
     Dates: start: 20190131
  13. SUCRALFATE. [Concomitant]
     Active Substance: SUCRALFATE
     Indication: BLOOD LOSS ANAEMIA
     Dosage: UNK, Q8H
     Route: 048
     Dates: start: 20190514

REACTIONS (7)
  - Catheter site haemorrhage [Unknown]
  - Hyponatraemia [Not Recovered/Not Resolved]
  - Bone marrow failure [Recovered/Resolved]
  - Pyelonephritis [Unknown]
  - Anaemia [Unknown]
  - Febrile neutropenia [Recovered/Resolved]
  - General physical health deterioration [Unknown]

NARRATIVE: CASE EVENT DATE: 20190607
